FAERS Safety Report 13193823 (Version 1)
Quarter: 2017Q1

REPORT INFORMATION
  Report Type: Spontaneous
  Country: US (occurrence: US)
  Receive Date: 20170207
  Receipt Date: 20170207
  Transmission Date: 20170428
  Serious: No
  Sender: FDA-Public Use
  Company Number: US-CELGENEUS-USA-2017020134

PATIENT
  Sex: Female
  Weight: 136.2 kg

DRUGS (1)
  1. REVLIMID [Suspect]
     Active Substance: LENALIDOMIDE
     Indication: PLASMA CELL MYELOMA
     Dosage: 10 MILLIGRAM
     Route: 048
     Dates: start: 20160601

REACTIONS (4)
  - Drug dose omission [Unknown]
  - Sinus disorder [Recovered/Resolved]
  - Fatigue [Unknown]
  - Tooth disorder [Unknown]
